FAERS Safety Report 9304848 (Version 1)
Quarter: 2013Q2

REPORT INFORMATION
  Report Type: Spontaneous
  Country: US (occurrence: None)
  Receive Date: 20130521
  Receipt Date: 20130521
  Transmission Date: 20140414
  Serious: Yes (Life-Threatening, Other)
  Sender: FDA-Public Use
  Company Number: None

PATIENT
  Age: 57 Year
  Sex: Female
  Weight: 60.78 kg

DRUGS (2)
  1. LAMOTRIGINE [Suspect]
     Indication: MOOD SWINGS
     Dosage: ONE TABLET DAILY, ONCE A DAY
     Dates: start: 20130208, end: 20130427
  2. LAMOTRIGINE [Suspect]
     Indication: DEPRESSION
     Dosage: ONE TABLET DAILY, ONCE A DAY
     Dates: start: 20130208, end: 20130427

REACTIONS (2)
  - Palpitations [None]
  - Dyspnoea [None]
